FAERS Safety Report 9916486 (Version 2)
Quarter: 2014Q4

REPORT INFORMATION
  Report Type: Spontaneous
  Country: GB (occurrence: None)
  Receive Date: 20140219
  Receipt Date: 20141126
  Transmission Date: 20150529
  Serious: Yes (Other)
  Sender: FDA-Public Use
  Company Number: 2191288

PATIENT
  Age: 41 Year
  Sex: Female

DRUGS (5)
  1. OMEPRAZOLE. [Concomitant]
     Active Substance: OMEPRAZOLE
  2. MEROPENEM. [Concomitant]
     Active Substance: MEROPENEM
  3. DEXMEDETOMIDINE HYDROCHLORIDE. [Suspect]
     Active Substance: DEXMEDETOMIDINE HYDROCHLORIDE
     Indication: AGITATION
     Dosage: INTRAVNEOUS (NOT OTHERWISE SPECIFIED)
     Route: 042
     Dates: start: 20140125, end: 20140126
  4. HEPARIN [Concomitant]
     Active Substance: HEPARIN SODIUM
  5. FLUCLOXACILLIN [Concomitant]
     Active Substance: FLUCLOXACILLIN

REACTIONS (4)
  - Bradycardia [None]
  - Discomfort [None]
  - Sinus arrest [None]
  - Blood pressure abnormal [None]

NARRATIVE: CASE EVENT DATE: 20140125
